FAERS Safety Report 7103300-X (Version None)
Quarter: 2010Q4

REPORT INFORMATION
  Report Type: 
  Country: None (occurrence: None)
  Receive Date: 20101115
  Receipt Date: 20101110
  Transmission Date: 20110411
  Serious: Yes (Disabling)
  Sender: FDA-Public Use
  Company Number: FR-TEVA-254877ISR

PATIENT
  Sex: Male

DRUGS (4)
  1. AZILECT [Suspect]
     Indication: PARKINSON'S DISEASE
     Route: 048
     Dates: start: 20100510, end: 20100101
  2. MADOPAR [Concomitant]
     Indication: PARKINSON'S DISEASE
  3. PRAMIPEXOLE DIHYDROCHLORIDE [Concomitant]
     Indication: PARKINSON'S DISEASE
  4. MACROGOL [Concomitant]

REACTIONS (2)
  - INFLAMMATION [None]
  - TENDON RUPTURE [None]
